FAERS Safety Report 20872752 (Version 1)
Quarter: 2022Q2

REPORT INFORMATION
  Report Type: Spontaneous
  Country: US (occurrence: None)
  Receive Date: 20220525
  Receipt Date: 20220525
  Transmission Date: 20220721
  Serious: Yes (Life-Threatening)
  Sender: FDA-Public Use
  Company Number: 2022A194111

PATIENT
  Age: 15 Year
  Sex: Male
  Weight: 60.3 kg

DRUGS (8)
  1. FASENRA [Suspect]
     Active Substance: BENRALIZUMAB
     Indication: Asthma
     Route: 058
     Dates: start: 20200120, end: 20220325
  2. FASENRA [Suspect]
     Active Substance: BENRALIZUMAB
     Indication: Asthma
     Dosage: X3 DOSES
     Route: 058
     Dates: start: 20190927
  3. SYMBICORT [Concomitant]
     Active Substance: BUDESONIDE\FORMOTEROL FUMARATE DIHYDRATE
     Indication: Asthma
     Dosage: 2P
     Dates: start: 20200518
  4. SINGULAIR [Concomitant]
     Active Substance: MONTELUKAST SODIUM
     Indication: Asthma
     Dates: start: 20110427
  5. SPIRIVA RESPIMAT [Concomitant]
     Active Substance: TIOTROPIUM BROMIDE
     Dosage: 2P
     Dates: start: 20190419
  6. FLONASE [Concomitant]
     Active Substance: FLUTICASONE PROPIONATE
     Dosage: 2SP
     Dates: start: 20190726
  7. XOPENEX [Concomitant]
     Active Substance: LEVALBUTEROL HYDROCHLORIDE
     Dosage: 2P PRN
     Dates: start: 20171016
  8. EPINEPHRINE [Concomitant]
     Active Substance: EPINEPHRINE
     Dosage: IM PRN
     Dates: start: 20150629

REACTIONS (11)
  - Anaphylactic reaction [Unknown]
  - Nausea [Unknown]
  - Secretion discharge [Unknown]
  - Dizziness [Unknown]
  - Chest discomfort [Unknown]
  - Dyspnoea [Unknown]
  - Wheezing [Unknown]
  - Hyperhidrosis [Unknown]
  - Pallor [Unknown]
  - Oxygen saturation decreased [Unknown]
  - Loss of consciousness [Unknown]

NARRATIVE: CASE EVENT DATE: 20220325
